FAERS Safety Report 12646891 (Version 1)
Quarter: 2016Q3

REPORT INFORMATION
  Report Type: Spontaneous
  Country: US (occurrence: None)
  Receive Date: 20160811
  Receipt Date: 20160811
  Transmission Date: 20161109
  Serious: Yes (Other)
  Sender: FDA-Public Use
  Company Number: None

PATIENT
  Age: 46 Year
  Sex: Female
  Weight: 90.72 kg

DRUGS (9)
  1. ZOFRAN [Concomitant]
     Active Substance: ONDANSETRON HYDROCHLORIDE
  2. ALLEGRA [Concomitant]
     Active Substance: FEXOFENADINE HYDROCHLORIDE
  3. FASLODEX [Concomitant]
     Active Substance: FULVESTRANT
  4. IBUPROFEN. [Concomitant]
     Active Substance: IBUPROFEN
  5. MORPHINE SULF ER 30MG TABLET, 30 MG [Suspect]
     Active Substance: MORPHINE SULFATE
     Indication: BONE CANCER
     Route: 048
     Dates: start: 20160802, end: 20160809
  6. PRISTIQ EXTENDED-RELEASE [Concomitant]
     Active Substance: DESVENLAFAXINE SUCCINATE
  7. XANAX [Concomitant]
     Active Substance: ALPRAZOLAM
  8. PANTROPRAZOLE [Concomitant]
  9. EXEMESTANE. [Concomitant]
     Active Substance: EXEMESTANE

REACTIONS (3)
  - Product substitution issue [None]
  - Drug ineffective [None]
  - Pain [None]

NARRATIVE: CASE EVENT DATE: 20160808
